FAERS Safety Report 5897241-3 (Version None)
Quarter: 2008Q3

REPORT INFORMATION
  Report Type: 
  Country: None (occurrence: None)
  Receive Date: 20080827
  Receipt Date: 20080501
  Transmission Date: 20090109
  Serious: Yes (Hospitalization)
  Sender: FDA-Public Use
  Company Number: PHEH2008US04272

PATIENT
  Age: 84 Year
  Sex: Female
  Weight: 79.8 kg

DRUGS (5)
  1. RECLAST [Suspect]
     Indication: OSTEOPOROSIS
     Dosage: 5 MG, ONCE YEARLY, INTRAVENEOUS
     Route: 042
     Dates: start: 20080303
  2. ASPIRIN [Concomitant]
  3. CLONIDINE [Concomitant]
  4. NORVASC [Concomitant]
  5. PREDNISONE [Concomitant]

REACTIONS (4)
  - BIOPSY KIDNEY [None]
  - DIALYSIS [None]
  - NEPHRITIS INTERSTITIAL [None]
  - RENAL FAILURE ACUTE [None]
